FAERS Safety Report 21467488 (Version 2)
Quarter: 2022Q4

REPORT INFORMATION
  Report Type: Spontaneous
  Country: BE (occurrence: BE)
  Receive Date: 20221017
  Receipt Date: 20221025
  Transmission Date: 20230113
  Serious: Yes (Hospitalization, Other)
  Sender: FDA-Public Use
  Company Number: BE-PFIZER INC-PV202200037907

PATIENT
  Sex: Male
  Weight: 74 kg

DRUGS (2)
  1. SUTENT [Suspect]
     Active Substance: SUNITINIB MALATE
     Indication: Thymic carcinoma
     Dosage: 50 MG, 1X/DAY, 4 WEEKS ON/2WEEKS OFF
     Route: 048
     Dates: start: 20220818
  2. SUTENT [Suspect]
     Active Substance: SUNITINIB MALATE
     Dosage: 37.5 MG, DAILY 4 WEEKS ON/2 WEEKS OFF

REACTIONS (5)
  - Ejection fraction decreased [Recovered/Resolved]
  - Neutropenia [Recovered/Resolved]
  - Diarrhoea [Recovered/Resolved]
  - Drug effective for unapproved indication [Unknown]
  - Off label use [Unknown]

NARRATIVE: CASE EVENT DATE: 20220915
